FAERS Safety Report 4678206-6 (Version None)
Quarter: 2005Q2

REPORT INFORMATION
  Report Type: 
  Country: None (occurrence: None)
  Receive Date: 20050601
  Receipt Date: 20050527
  Transmission Date: 20051028
  Serious: Yes (Other)
  Sender: FDA-Public Use
  Company Number: PHBS2005CA07635

PATIENT
  Age: 55 Year
  Sex: Female

DRUGS (1)
  1. FAMVIR [Suspect]
     Dosage: 500 MG, TID
     Route: 048
     Dates: start: 20050505

REACTIONS (2)
  - CEREBRAL ARTERY OCCLUSION [None]
  - CEREBROVASCULAR ACCIDENT [None]
